FAERS Safety Report 14868150 (Version 2)
Quarter: 2018Q2

REPORT INFORMATION
  Report Type: Other
  Country: JP (occurrence: JP)
  Receive Date: 20180509
  Receipt Date: 20180514
  Transmission Date: 20180711
  Serious: Yes (Hospitalization, Other)
  Sender: FDA-Public Use
  Company Number: JP-DEXPHARM-20180312

PATIENT
  Age: 33 Year
  Sex: Male

DRUGS (3)
  1. BETAMETHASONE. [Concomitant]
     Active Substance: BETAMETHASONE
     Dosage: 5 TIMES DAILY
     Route: 047
  2. LEVOFLOXACIN. [Concomitant]
     Active Substance: LEVOFLOXACIN
     Dosage: 5 TIMES DAILY
     Route: 047
  3. DICLOFENAC SODIUM. [Suspect]
     Active Substance: DICLOFENAC SODIUM
     Indication: PROMOTION OF WOUND HEALING
     Dosage: 3 TIMES A DAY
     Route: 047

REACTIONS (4)
  - Inappropriate schedule of drug administration [Unknown]
  - Ciliary hyperaemia [Unknown]
  - Incorrect drug administration duration [Unknown]
  - Ulcerative keratitis [Unknown]
